FAERS Safety Report 5422454-4 (Version None)
Quarter: 2007Q3

REPORT INFORMATION
  Report Type: 
  Country: None (occurrence: None)
  Receive Date: 20070820
  Receipt Date: 20070814
  Transmission Date: 20080115
  Serious: Yes (Other)
  Sender: FDA-Public Use
  Company Number: 2007SP014134

PATIENT
  Age: 42 Year
  Sex: Male

DRUGS (4)
  1. PEG-INTRON [Suspect]
     Indication: HEPATITIS C
     Dosage: 120 MCG; QW; SC, 80 MCG; QW; SC, 50 MCG; QW; SC
     Route: 058
     Dates: start: 20070323, end: 20070418
  2. PEG-INTRON [Suspect]
     Indication: HEPATITIS C
     Dosage: 120 MCG; QW; SC, 80 MCG; QW; SC, 50 MCG; QW; SC
     Route: 058
     Dates: start: 20070418, end: 20070627
  3. PEG-INTRON [Suspect]
     Indication: HEPATITIS C
     Dosage: 120 MCG; QW; SC, 80 MCG; QW; SC, 50 MCG; QW; SC
     Route: 058
     Dates: start: 20070627
  4. RIBAVIRIN [Concomitant]

REACTIONS (2)
  - ASTHENIA [None]
  - TRANSAMINASES INCREASED [None]
